FAERS Safety Report 7350376-0 (Version None)
Quarter: 2011Q1

REPORT INFORMATION
  Report Type: 
  Country: None (occurrence: None)
  Receive Date: 20110314
  Receipt Date: 20110228
  Transmission Date: 20110831
  Serious: Yes (Death, Life-Threatening)
  Sender: FDA-Public Use
  Company Number: DE-JNJFOC-20110208208

PATIENT
  Age: 74 Year
  Sex: Male

DRUGS (19)
  1. DOMINAL [Suspect]
     Indication: ILL-DEFINED DISORDER
     Route: 048
     Dates: end: 20100818
  2. DOMINAL [Suspect]
     Route: 048
     Dates: end: 20100818
  3. CIPROFLOXACIN [Concomitant]
     Route: 048
     Dates: start: 20100810, end: 20100815
  4. HALDOL [Suspect]
     Route: 048
     Dates: start: 20100805, end: 20100817
  5. MIRTAZAPIN [Suspect]
     Indication: ILL-DEFINED DISORDER
     Route: 048
     Dates: end: 20100817
  6. LIORESAL [Suspect]
     Indication: ILL-DEFINED DISORDER
     Route: 048
  7. METHIONIN [Concomitant]
     Route: 048
     Dates: end: 20100818
  8. HALDOL [Suspect]
     Route: 048
     Dates: start: 20100805, end: 20100817
  9. OXAZEPAM [Suspect]
     Route: 048
     Dates: end: 20100818
  10. TROSPIUM [Concomitant]
     Route: 048
     Dates: end: 20100818
  11. OXAZEPAM [Suspect]
     Indication: ILL-DEFINED DISORDER
     Route: 048
     Dates: end: 20100818
  12. HALDOL [Suspect]
     Indication: PRODUCT USED FOR UNKNOWN INDICATION
     Route: 048
     Dates: start: 20100805, end: 20100817
  13. HALDOL [Suspect]
     Route: 048
     Dates: start: 20100805, end: 20100817
  14. OXAZEPAM [Suspect]
     Route: 048
     Dates: end: 20100818
  15. MIRTAZAPIN [Suspect]
     Route: 048
     Dates: end: 20100817
  16. DOMINAL [Suspect]
     Route: 048
     Dates: end: 20100818
  17. NOVAMINSULFON [Concomitant]
     Route: 048
     Dates: end: 20100819
  18. GLYBURIDE [Concomitant]
     Route: 048
     Dates: end: 20100815
  19. FOLSAN [Concomitant]
     Route: 048
     Dates: start: 20100807, end: 20100818

REACTIONS (4)
  - DEATH [None]
  - PNEUMONIA [None]
  - APNOEA [None]
  - SEDATION [None]
